FAERS Safety Report 7356209-0 (Version None)
Quarter: 2011Q1

REPORT INFORMATION
  Report Type: 
  Country: None (occurrence: None)
  Receive Date: 20110316
  Receipt Date: 20100817
  Transmission Date: 20110831
  Serious: Yes (Hospitalization)
  Sender: FDA-Public Use
  Company Number: US-BAYER-201012820NA

PATIENT
  Sex: Female
  Weight: 86.168 kg

DRUGS (4)
  1. CARDIZEM [Concomitant]
     Dosage: 180 MG, UNK
     Route: 048
  2. TRAMADOL HCL [Concomitant]
     Dosage: 50 MG, UNK
     Route: 048
  3. ACIPHEX [Concomitant]
     Dosage: 20 MG, DAILY
     Route: 048
  4. YAZ [Suspect]
     Indication: MENSTRUATION IRREGULAR
     Dosage: AS USED DOSE: UNK
     Route: 048
     Dates: start: 20060601, end: 20070201

REACTIONS (2)
  - DEEP VEIN THROMBOSIS [None]
  - PAIN [None]
